FAERS Safety Report 7505675-6 (Version None)
Quarter: 2011Q2

REPORT INFORMATION
  Report Type: 
  Country: None (occurrence: None)
  Receive Date: 20110404
  Receipt Date: 20100721
  Transmission Date: 20111010
  Serious: Yes (Other)
  Sender: FDA-Public Use
  Company Number: 010528

PATIENT
  Age: 8 Month
  Sex: Female

DRUGS (5)
  1. MYCOPHENOLATE MOFETIL [Concomitant]
  2. CYCLOSPORINE [Concomitant]
  3. CYCLOPHOSPHAMIDE [Concomitant]
  4. BUSULFEX [Suspect]
     Indication: STEM CELL TRANSPLANT
     Dosage: 1 MG/KG, INTRAVENOUS
     Route: 042
  5. ANTI-THYMOCYTE GLOBULIN NOS [Concomitant]

REACTIONS (3)
  - ACUTE GRAFT VERSUS HOST DISEASE IN SKIN [None]
  - STOMATITIS [None]
  - GRAFT VERSUS HOST DISEASE [None]
